FAERS Safety Report 6822101-0 (Version None)
Quarter: 2010Q3

REPORT INFORMATION
  Report Type: 
  Country: None (occurrence: None)
  Receive Date: 20100708
  Receipt Date: 20100629
  Transmission Date: 20110219
  Serious: Yes (Other)
  Sender: FDA-Public Use
  Company Number: GR-JNJFOC-20100608611

PATIENT
  Sex: Female

DRUGS (2)
  1. TAVANIC [Suspect]
     Indication: BRONCHITIS
     Route: 048
  2. ALL OTHER THERAPEUTIC PRODUCTS [Concomitant]
     Route: 065

REACTIONS (3)
  - BRONCHOSPASM [None]
  - COUGH [None]
  - DYSPNOEA [None]
